FAERS Safety Report 17525061 (Version 1)
Quarter: 2020Q1

REPORT INFORMATION
  Report Type: Spontaneous
  Country: CN (occurrence: CN)
  Receive Date: 20200310
  Receipt Date: 20200310
  Transmission Date: 20200409
  Serious: Yes (Life-Threatening)
  Sender: FDA-Public Use
  Company Number: CN-BAYER-2020-038175

PATIENT
  Age: 58 Year
  Sex: Female
  Weight: 60 kg

DRUGS (3)
  1. OXIRACETAM [Concomitant]
     Active Substance: OXIRACETAM
  2. OMEPRAZOLE SODIUM [Concomitant]
     Active Substance: OMEPRAZOLE SODIUM
  3. AVELOX [Suspect]
     Active Substance: MOXIFLOXACIN HYDROCHLORIDE
     Indication: ANTI-INFECTIVE THERAPY
     Dosage: 250 ML, QD
     Route: 041
     Dates: start: 20200213, end: 20200223

REACTIONS (1)
  - Hepatic function abnormal [Recovered/Resolved]

NARRATIVE: CASE EVENT DATE: 20200219
